FAERS Safety Report 15080236 (Version 1)
Quarter: 2018Q2

REPORT INFORMATION
  Report Type: Report from Study
  Country: None (occurrence: GB)
  Receive Date: 20180628
  Receipt Date: 20180628
  Transmission Date: 20180711
  Serious: Yes (Other)
  Sender: FDA-Public Use
  Company Number: GB-ABBVIE-18S-167-2400173-00

PATIENT
  Age: 56 Year
  Sex: Female

DRUGS (4)
  1. VIEKIRAX [Suspect]
     Active Substance: OMBITASVIR\PARITAPREVIR\RITONAVIR
     Indication: HEPATITIS C
     Dosage: NORMAL REGIME
     Route: 048
     Dates: start: 201709
  2. EXVIERA [Suspect]
     Active Substance: DASABUVIR
     Indication: HEPATITIS C
     Dosage: NORMAL REGIME
     Route: 048
     Dates: start: 201709
  3. COCODAMOL [Suspect]
     Active Substance: ACETAMINOPHEN\CODEINE PHOSPHATE
     Indication: PAIN MANAGEMENT
     Route: 065
  4. COCODAMOL [Suspect]
     Active Substance: ACETAMINOPHEN\CODEINE PHOSPHATE
     Indication: PAIN MANAGEMENT

REACTIONS (12)
  - Depression [Unknown]
  - Hepatic cirrhosis [Unknown]
  - Myalgia [Unknown]
  - Rash [Unknown]
  - Fatigue [Unknown]
  - Pruritus [Unknown]
  - Insomnia [Unknown]
  - Abdominal pain [Unknown]
  - Hallucination [Unknown]
  - Arthritis [Unknown]
  - Drug dependence [Unknown]
  - Chest discomfort [Unknown]

NARRATIVE: CASE EVENT DATE: 201803
